FAERS Safety Report 4548669-5 (Version None)
Quarter: 2005Q1

REPORT INFORMATION
  Report Type: 
  Country: None (occurrence: None)
  Receive Date: 20050107
  Receipt Date: 20050107
  Transmission Date: 20050727
  Serious: No
  Sender: FDA-Public Use
  Company Number: None

PATIENT
  Age: 56 Year
  Sex: Female
  Weight: 59.8748 kg

DRUGS (2)
  1. CEFUROXIME AXETIL [Suspect]
     Dosage: 250 MG BID PO
     Route: 048
     Dates: start: 20020430
  2. CEFUROXIME AXETIL [Suspect]
     Dosage: 250 MG BID PO
     Route: 048
     Dates: start: 20020515

REACTIONS (5)
  - CONDITION AGGRAVATED [None]
  - DRUG EFFECT DECREASED [None]
  - DYSGEUSIA [None]
  - GASTROOESOPHAGEAL REFLUX DISEASE [None]
  - PHARMACEUTICAL PRODUCT COMPLAINT [None]
